FAERS Safety Report 13563324 (Version 1)
Quarter: 2017Q2

REPORT INFORMATION
  Report Type: Spontaneous
  Country: FR (occurrence: FR)
  Receive Date: 20170519
  Receipt Date: 20170519
  Transmission Date: 20170830
  Serious: Yes (Death, Other)
  Sender: FDA-Public Use
  Company Number: FR-UCBSA-2017018853

PATIENT
  Age: 34 Year

DRUGS (2)
  1. LACOSAMIDE. [Suspect]
     Active Substance: LACOSAMIDE
     Indication: PRODUCT USED FOR UNKNOWN INDICATION
     Dosage: UNK
  2. METOPROLOL. [Suspect]
     Active Substance: METOPROLOL
     Indication: PRODUCT USED FOR UNKNOWN INDICATION
     Dosage: UNKNOWN DOSE

REACTIONS (7)
  - Seizure [Unknown]
  - Renal failure [Unknown]
  - Mydriasis [Unknown]
  - Bradypnoea [Unknown]
  - Metabolic acidosis [Unknown]
  - Cardiac arrest [Unknown]
  - Toxicity to various agents [Fatal]
